FAERS Safety Report 8218042-7 (Version None)
Quarter: 2012Q1

REPORT INFORMATION
  Report Type: 
  Country: None (occurrence: None)
  Receive Date: 20120319
  Receipt Date: 20120228
  Transmission Date: 20120608
  Serious: Yes (Hospitalization, Disabling, Other)
  Sender: FDA-Public Use
  Company Number: US-PFIZER INC-2012069915

PATIENT
  Sex: Female

DRUGS (5)
  1. CELEBREX [Suspect]
     Indication: PROPHYLAXIS
     Dosage: UNK
  2. TREXALL [Concomitant]
     Dosage: UNK
     Dates: start: 20000101
  3. ENBREL [Suspect]
     Dosage: UNK
     Dates: start: 20120228
  4. ENBREL [Suspect]
     Indication: RHEUMATOID ARTHRITIS
     Dosage: 50 MG, QWK
     Dates: start: 20021206, end: 20040101
  5. HUMIRA [Suspect]

REACTIONS (11)
  - WHEELCHAIR USER [None]
  - HYPOTENSION [None]
  - WHITE BLOOD CELL COUNT DECREASED [None]
  - INJECTION SITE PAIN [None]
  - RHEUMATOID ARTHRITIS [None]
  - ABDOMINAL DISCOMFORT [None]
  - RED BLOOD CELL COUNT DECREASED [None]
  - MUSCULOSKELETAL PAIN [None]
  - PALLOR [None]
  - JOINT DESTRUCTION [None]
  - HAEMOGLOBIN DECREASED [None]
